FAERS Safety Report 22321614 (Version 3)
Quarter: 2024Q4

REPORT INFORMATION
  Report Type: Spontaneous
  Country: JP (occurrence: JP)
  Receive Date: 20230515
  Receipt Date: 20241203
  Transmission Date: 20250115
  Serious: Yes (Other)
  Sender: SANOFI AVENTIS
  Company Number: JP-SA-2023SA146654

PATIENT
  Sex: Female

DRUGS (1)
  1. KEVZARA [Suspect]
     Active Substance: SARILUMAB
     Indication: Product used for unknown indication
     Dosage: UNK
     Route: 058
     Dates: start: 202207, end: 202211

REACTIONS (5)
  - Renal impairment [Not Recovered/Not Resolved]
  - Lymphocyte count increased [Recovered/Resolved]
  - Platelet count decreased [Recovered/Resolved]
  - Cystitis [Unknown]
  - Haematuria [Unknown]

NARRATIVE: CASE EVENT DATE: 20220901
